FAERS Safety Report 5979905-6 (Version None)
Quarter: 2008Q4

REPORT INFORMATION
  Report Type: 
  Country: None (occurrence: None)
  Receive Date: 20081126
  Receipt Date: 20081113
  Transmission Date: 20090506
  Serious: Yes (Hospitalization)
  Sender: FDA-Public Use
  Company Number: PAR_02441_2008

PATIENT
  Sex: Male

DRUGS (5)
  1. IBUPROFEN [Suspect]
     Indication: TOOTHACHE
     Dosage: 800 MG ORAL
     Route: 048
     Dates: start: 20081029, end: 20081104
  2. NAPROSYN [Suspect]
     Indication: TOOTHACHE
     Dosage: 250 MG ORAL
     Route: 048
     Dates: start: 20081101, end: 20081103
  3. LINCOCIN [Concomitant]
  4. FELDENE [Suspect]
     Indication: TOOTHACHE
     Dosage: 20 MG SUBLINGUAL
     Route: 060
     Dates: start: 20081029, end: 20081102
  5. MESULID (MESULID - NIMESULIDE) (NOT SPECIFIED) [Suspect]
     Indication: TOOTHACHE
     Dosage: 200 MG ORAL
     Route: 048
     Dates: start: 20081029, end: 20081103

REACTIONS (4)
  - DUODENAL ULCER [None]
  - EROSIVE DUODENITIS [None]
  - HAEMATOCRIT DECREASED [None]
  - HAEMOGLOBIN DECREASED [None]
